FAERS Safety Report 24089774 (Version 1)
Quarter: 2024Q3

REPORT INFORMATION
  Report Type: Spontaneous
  Country: GB (occurrence: GB)
  Receive Date: 20240715
  Receipt Date: 20240715
  Transmission Date: 20241016
  Serious: Yes (Hospitalization, Other)
  Sender: ACCORD
  Company Number: None

PATIENT
  Age: 79 Year

DRUGS (13)
  1. APIXABAN [Suspect]
     Active Substance: APIXABAN
     Indication: Product used for unknown indication
  2. SIMVASTATIN [Concomitant]
     Active Substance: SIMVASTATIN
     Dosage: ONE TO BE TAKEN?AT NIGHT
  3. PREDNISOLONE [Concomitant]
     Active Substance: PREDNISOLONE
  4. OMEPRAZOLE [Concomitant]
     Active Substance: OMEPRAZOLE
  5. ACETAMINOPHEN [Concomitant]
     Active Substance: ACETAMINOPHEN
     Dosage: 1-2 FOUR TIMES DAILY WHEN REQUIRED
  6. EMPAGLIFLOZIN [Concomitant]
     Active Substance: EMPAGLIFLOZIN
  7. METFORMIN [Concomitant]
     Active Substance: METFORMIN HYDROCHLORIDE
  8. GLICLAZIDE [Concomitant]
     Active Substance: GLICLAZIDE
     Dosage: ONE TO BE TAKEN DAILY WITH?BREAKFAST
  9. DIGOXIN [Concomitant]
     Active Substance: DIGOXIN
     Dosage: ONE TO BE TAKEN EACH DAY
  10. BISOPROLOL [Concomitant]
     Active Substance: BISOPROLOL\BISOPROLOL FUMARATE
     Dosage: ONE TO BE TAKEN EACH?MORNING AND EVENING
  11. AMITRIPTYLINE [Concomitant]
     Active Substance: AMITRIPTYLINE
     Dosage: AMITRIPTYLINE 10?MG TABLETS TWO TO BE TAKEN AT NIGHT
  12. ASPIRIN [Concomitant]
     Active Substance: ASPIRIN
  13. COAL TAR\COCONUT OIL\SALICYLIC ACID [Concomitant]
     Active Substance: COAL TAR\COCONUT OIL\SALICYLIC ACID
     Dosage: APPLY EACH DAY?WHEN REQUIRED

REACTIONS (2)
  - Treatment failure [Unknown]
  - Pulmonary embolism [Unknown]
